FAERS Safety Report 14706906 (Version 5)
Quarter: 2025Q2

REPORT INFORMATION
  Report Type: Report from Study
  Country: US (occurrence: US)
  Receive Date: 20180403
  Receipt Date: 20250425
  Transmission Date: 20250717
  Serious: Yes (Other)
  Sender: ROCHE
  Company Number: US-ROCHE-2097263

PATIENT
  Sex: Male

DRUGS (26)
  1. CELLCEPT [Suspect]
     Active Substance: MYCOPHENOLATE MOFETIL
     Indication: Polymyositis
     Dosage: 500 MG 1 TAB BID
     Route: 048
     Dates: start: 20220413
  2. CELLCEPT [Suspect]
     Active Substance: MYCOPHENOLATE MOFETIL
     Dosage: SIG PER ATTACHED PAD RX
     Route: 048
  3. CELLCEPT [Suspect]
     Active Substance: MYCOPHENOLATE MOFETIL
     Indication: Polymyositis
     Route: 048
  4. MYCOPHENOLATE MOFETIL HYDROCHLORIDE [Suspect]
     Active Substance: MYCOPHENOLATE MOFETIL HYDROCHLORIDE
     Indication: Polymyositis
     Route: 048
  5. SODIUM CHLORIDE [Concomitant]
     Active Substance: SODIUM CHLORIDE
  6. ADVAIR DISKUS [Concomitant]
     Active Substance: FLUTICASONE PROPIONATE\SALMETEROL XINAFOATE
     Route: 055
     Dates: start: 20240819
  7. ALBUTEROL [Concomitant]
     Active Substance: ALBUTEROL
     Route: 055
     Dates: start: 20250207
  8. ALBUTEROL [Concomitant]
     Active Substance: ALBUTEROL
     Dates: start: 20250207
  9. LASTACAFT [Concomitant]
     Active Substance: ALCAFTADINE
     Route: 047
  10. ZYLOPRIM [Concomitant]
     Active Substance: ALLOPURINOL
     Route: 048
     Dates: start: 20250131
  11. AMLODIPINE [Concomitant]
     Active Substance: AMLODIPINE BESYLATE
     Route: 048
     Dates: start: 20250210
  12. CARBOXYMETHYLCELLULOSE [Concomitant]
     Active Substance: CARBOXYMETHYLCELLULOSE
     Route: 047
     Dates: start: 20240819
  13. KEFLEX [Concomitant]
     Active Substance: CEPHALEXIN
     Dates: start: 20250228
  14. REPATHA [Concomitant]
     Active Substance: EVOLOCUMAB
     Dates: start: 20241119
  15. LASIX [Concomitant]
     Active Substance: FUROSEMIDE
     Dates: start: 20250121
  16. XYZAL [Concomitant]
     Active Substance: LEVOCETIRIZINE DIHYDROCHLORIDE
     Route: 048
  17. LIDODERM [Concomitant]
     Active Substance: LIDOCAINE
     Dates: start: 20170914
  18. COZAAR [Concomitant]
     Active Substance: LOSARTAN POTASSIUM
     Dates: start: 20250121
  19. MYCOSTATIN [Concomitant]
     Active Substance: NYSTATIN
     Dates: start: 20240620
  20. PATADAY [Concomitant]
     Active Substance: OLOPATADINE HYDROCHLORIDE
     Route: 047
     Dates: start: 20240819
  21. OMEGA-3/DHA/EPA/FISH OIL (SEA-OMEGA 50) [Concomitant]
     Dates: start: 20150113
  22. VOTRIENT [Concomitant]
     Active Substance: PAZOPANIB HYDROCHLORIDE
     Route: 048
     Dates: start: 20241203
  23. DELTASONE [Concomitant]
     Active Substance: PREDNISONE
     Route: 048
  24. DELTASONE [Concomitant]
     Active Substance: PREDNISONE
     Route: 048
     Dates: start: 20240715
  25. DELTASONE [Concomitant]
     Active Substance: PREDNISONE
     Route: 048
     Dates: start: 20241125
  26. FLOMAX [Concomitant]
     Active Substance: TAMSULOSIN HYDROCHLORIDE
     Dates: start: 20241125

REACTIONS (2)
  - Loss of consciousness [Unknown]
  - Off label use [Unknown]
